FAERS Safety Report 6363345-4 (Version None)
Quarter: 2009Q3

REPORT INFORMATION
  Report Type: 
  Country: None (occurrence: None)
  Receive Date: 20090919
  Receipt Date: 20090629
  Transmission Date: 20100115
  Serious: No
  Sender: FDA-Public Use
  Company Number: US-ABBOTT-09P-163-0582311-00

PATIENT
  Sex: Female
  Weight: 63.56 kg

DRUGS (2)
  1. HUMIRA [Suspect]
     Indication: RHEUMATOID ARTHRITIS
     Dates: start: 20090616, end: 20090629
  2. HUMIRA [Suspect]
     Dates: start: 20050101, end: 20090101

REACTIONS (5)
  - IMMUNE SYSTEM DISORDER [None]
  - MALAISE [None]
  - SKIN LESION [None]
  - VOMITING [None]
  - WHITE BLOOD CELL COUNT INCREASED [None]
